FAERS Safety Report 7769382-7 (Version None)
Quarter: 2011Q3

REPORT INFORMATION
  Report Type: 
  Country: None (occurrence: None)
  Receive Date: 20110922
  Receipt Date: 20101215
  Transmission Date: 20111222
  Serious: No
  Sender: FDA-Public Use
  Company Number: US-ASTRAZENECA-2010SE55719

PATIENT
  Sex: Male

DRUGS (7)
  1. PAXIL [Concomitant]
  2. CLONAZEPAM [Concomitant]
  3. TRAZODONE HYDROCHLORIDE [Concomitant]
  4. SEROQUEL XR [Suspect]
     Indication: HALLUCINATIONS, MIXED
     Route: 048
     Dates: start: 20101001, end: 20101119
  5. SEROQUEL XR [Suspect]
     Indication: ANGER
     Route: 048
     Dates: start: 20101001, end: 20101119
  6. IBUPROFEN [Concomitant]
  7. NAPROSYN [Concomitant]

REACTIONS (6)
  - DRUG DOSE OMISSION [None]
  - PANIC ATTACK [None]
  - ANXIETY [None]
  - HALLUCINATION, AUDITORY [None]
  - AGORAPHOBIA [None]
  - PSYCHOMOTOR HYPERACTIVITY [None]
